FAERS Safety Report 18542874 (Version 1)
Quarter: 2020Q4

REPORT INFORMATION
  Report Type: Spontaneous
  Country: JP (occurrence: JP)
  Receive Date: 20201124
  Receipt Date: 20201124
  Transmission Date: 20210114
  Serious: Yes (Hospitalization, Other)
  Sender: FDA-Public Use
  Company Number: JP-PURDUE-USA-2020-0178657

PATIENT
  Age: 71 Year
  Sex: Female

DRUGS (3)
  1. NORSPAN [Suspect]
     Active Substance: BUPRENORPHINE
     Indication: BACK PAIN
  2. NORSPAN [Suspect]
     Active Substance: BUPRENORPHINE
     Indication: ARTHRALGIA
     Dosage: UNK
     Route: 062
  3. PARSABIV [Concomitant]
     Active Substance: ETELCALCETIDE HYDROCHLORIDE
     Dosage: 30 MCG, WEEKLY
     Route: 042

REACTIONS (4)
  - Plasma cell myeloma [Unknown]
  - Nausea [Unknown]
  - Dizziness [Unknown]
  - Drug dependence [Unknown]
